FAERS Safety Report 5457340-7 (Version None)
Quarter: 2007Q3

REPORT INFORMATION
  Report Type: 
  Country: None (occurrence: None)
  Receive Date: 20070918
  Receipt Date: 20070212
  Transmission Date: 20080115
  Serious: No
  Sender: FDA-Public Use
  Company Number: US-ASTRAZENECA-2007UW02821

PATIENT
  Age: 58 Year
  Sex: Female
  Weight: 102.5 kg

DRUGS (6)
  1. SEROQUEL [Suspect]
     Indication: BIPOLAR DISORDER
     Route: 048
     Dates: start: 20070209
  2. SEROQUEL [Suspect]
     Route: 048
  3. CELEXA [Concomitant]
  4. SYNTHROID [Concomitant]
  5. TRAVATAN [Concomitant]
  6. KLONOPIN [Concomitant]

REACTIONS (5)
  - DIZZINESS [None]
  - HYPOAESTHESIA [None]
  - MEMORY IMPAIRMENT [None]
  - MENTAL IMPAIRMENT [None]
  - SOMNOLENCE [None]
